FAERS Safety Report 26151585 (Version 1)
Quarter: 2025Q4

REPORT INFORMATION
  Report Type: Spontaneous
  Country: EU (occurrence: EU)
  Receive Date: 20251212
  Receipt Date: 20251212
  Transmission Date: 20260118
  Serious: Yes (Other)
  Sender: TEVA
  Company Number: None

PATIENT
  Age: 37 Year
  Sex: Female

DRUGS (3)
  1. AMOXICILLIN\CLAVULANIC ACID [Suspect]
     Active Substance: AMOXICILLIN\CLAVULANIC ACID
     Indication: Antibiotic therapy
     Dosage: TIME INTERVAL: 1 TOTAL: AMOXICILLIN + CLAVULANIC ACID (875/125 MG), ORAL TABLET, BATCH AND SPECIA...
     Route: 048
     Dates: start: 202505, end: 202505
  2. FOSTER [Concomitant]
     Active Substance: BECLOMETHASONE\FORMOTEROL
     Indication: Asthma
     Dosage: FOSTER (FORMOTEROL 100MCG/BECLOMETASONE 6MCG), AS-NEEDED, INHALED, FOR THE TREATMENT OF ASTHMA, B...
     Route: 065
  3. BISOPROLOL FUMARATE [Concomitant]
     Active Substance: BISOPROLOL FUMARATE
     Indication: Hypertension
     Dosage: BISOPROLOL (2.5 MG/DAY), ORAL TABLET, FOR THE TREATMENT OF HYPERTENSION, BATCH UNKNOWN
     Route: 048

REACTIONS (3)
  - Pruritus [Recovered/Resolved]
  - Urticaria [Recovered/Resolved]
  - Throat tightness [Recovered/Resolved]

NARRATIVE: CASE EVENT DATE: 20250501
